FAERS Safety Report 24327045 (Version 1)
Quarter: 2024Q3

REPORT INFORMATION
  Report Type: Spontaneous
  Country: IT (occurrence: IT)
  Receive Date: 20240917
  Receipt Date: 20240917
  Transmission Date: 20241016
  Serious: Yes (Death, Hospitalization)
  Sender: STRIDES
  Company Number: IT-STRIDES ARCOLAB LIMITED-2024SP011777

PATIENT
  Age: 71 Year
  Sex: Female

DRUGS (11)
  1. ETOPOSIDE [Suspect]
     Active Substance: ETOPOSIDE
     Indication: Prophylaxis
     Dosage: 100 MG/M2, CYCLICAL (4 CYCLES, AUC5 DAYS 1-3, EVERY 3 WEEKS)
     Route: 065
     Dates: start: 202109, end: 202111
  2. ETOPOSIDE [Suspect]
     Active Substance: ETOPOSIDE
     Indication: Febrile neutropenia
     Dosage: UNK, CYCLICAL RECHALLENGE, 2 CYCLES)
     Route: 065
  3. ETOPOSIDE [Suspect]
     Active Substance: ETOPOSIDE
     Indication: Neuroendocrine carcinoma metastatic
  4. CARBOPLATIN [Suspect]
     Active Substance: CARBOPLATIN
     Indication: Prophylaxis
     Dosage: UNK, CYCLICAL (AUC5 ON DAY 1) 4 CYCLES
     Route: 065
     Dates: start: 202109, end: 202111
  5. CARBOPLATIN [Suspect]
     Active Substance: CARBOPLATIN
     Indication: Febrile neutropenia
     Dosage: UNK, CYCLICAL (RECHALLENGE, 2 CYCLES)
     Route: 065
  6. CARBOPLATIN [Suspect]
     Active Substance: CARBOPLATIN
     Indication: Neuroendocrine carcinoma metastatic
  7. CAPECITABINE [Suspect]
     Active Substance: CAPECITABINE
     Indication: Neuroendocrine carcinoma
     Dosage: 500 MILLIGRAM, BID (ON DAY 1 TO 14) (3 CYCLES)
     Route: 065
     Dates: start: 2022
  8. CAPECITABINE [Suspect]
     Active Substance: CAPECITABINE
     Indication: Laryngeal cancer
  9. TEMOZOLOMIDE [Suspect]
     Active Substance: TEMOZOLOMIDE
     Indication: Neuroendocrine carcinoma
     Dosage: 200 MILLIGRAM, QD (ON DAY 10 TO 14) (3 CYCLES)
     Route: 065
     Dates: start: 2022
  10. TEMOZOLOMIDE [Suspect]
     Active Substance: TEMOZOLOMIDE
     Indication: Laryngeal cancer
  11. PHENYTOIN [Concomitant]
     Active Substance: PHENYTOIN
     Indication: Glossopharyngeal neuralgia
     Dosage: UNK
     Route: 065
     Dates: start: 202201

REACTIONS (7)
  - Pulmonary sepsis [Fatal]
  - Malignant neoplasm progression [Unknown]
  - Therapy non-responder [Unknown]
  - Drug intolerance [Unknown]
  - Nausea [Unknown]
  - Diarrhoea [Unknown]
  - Off label use [Unknown]

NARRATIVE: CASE EVENT DATE: 20210101
